FAERS Safety Report 10236290 (Version 1)
Quarter: 2014Q1

REPORT INFORMATION
  Report Type: Spontaneous
  Country: US (occurrence: None)
  Receive Date: 20140306
  Receipt Date: 20140306
  Transmission Date: 20141002
  Serious: Yes (Other)
  Sender: FDA-Public Use
  Company Number: 163-21880-13031164

PATIENT
  Age: 72 Year
  Sex: Male
  Weight: 63.5 kg

DRUGS (10)
  1. REVLIMID (LENALIDOMIDE) (25 MILLIGRAM, CAPSULES) [Suspect]
     Indication: PLASMA CELL MYELOMA
     Dosage: 25MG, 21 IN 21D, PO
     Dates: start: 20130218
  2. DEXAMETHASONE (DEXAMETHASONE) [Suspect]
     Indication: PLASMA CELL MYELOMA
     Dosage: D1-4 AND 8-11, PO
  3. LISINOPRIL (LISINOPRIL) [Concomitant]
  4. ATENOLOL (ATENOLOL) [Concomitant]
  5. LIPITOR (ATORVASTATIN) (TABLETS) [Concomitant]
  6. FUROSEMIDE (FUROSEMIDE) (TABLETS) [Concomitant]
  7. POTASSIUM CHLORIDE (POTASSIUM CHOLORIDE) (TABLETS) [Concomitant]
  8. MAGENSIUM OXIDE (MAGNESIUM OXIDE) (TABLETS) [Concomitant]
  9. ASPIRIN (ACETYLSALICYLIC ACID) (TABLETS) [Concomitant]
  10. DAILY MULTIVITAMIN (DAILY MULTIVITAMIN) (CAPSULES) [Concomitant]

REACTIONS (5)
  - Adverse drug reaction [None]
  - Oedema peripheral [None]
  - Dyspnoea [None]
  - Insomnia [None]
  - Dysphonia [None]
